FAERS Safety Report 6615422-8 (Version None)
Quarter: 2010Q1

REPORT INFORMATION
  Report Type: 
  Country: None (occurrence: None)
  Receive Date: 20100305
  Receipt Date: 20091120
  Transmission Date: 20100710
  Serious: No
  Sender: FDA-Public Use
  Company Number: A0822120A

PATIENT
  Sex: Male

DRUGS (4)
  1. REQUIP [Suspect]
     Indication: PARKINSON'S DISEASE
     Dosage: 2MG TWICE PER DAY
     Route: 048
     Dates: start: 20040101
  2. REQUIP XL [Suspect]
     Indication: PARKINSON'S DISEASE
     Dosage: 2MG TWICE PER DAY
     Route: 048
     Dates: start: 20090101
  3. STALEVO 100 [Concomitant]
  4. COREG [Concomitant]

REACTIONS (1)
  - SEDATION [None]
